FAERS Safety Report 7332334-5 (Version None)
Quarter: 2011Q1

REPORT INFORMATION
  Report Type: 
  Country: None (occurrence: None)
  Receive Date: 20110304
  Receipt Date: 20110224
  Transmission Date: 20110831
  Serious: Yes (Death, Hospitalization)
  Sender: FDA-Public Use
  Company Number: A0886816A

PATIENT
  Sex: Male

DRUGS (1)
  1. AVANDIA [Suspect]
     Indication: DIABETES MELLITUS
     Dosage: 8MG PER DAY
     Route: 048
     Dates: start: 20030930, end: 20050219

REACTIONS (4)
  - DEATH [None]
  - CARDIAC OPERATION [None]
  - CHEST PAIN [None]
  - ANGINA PECTORIS [None]
